FAERS Safety Report 21619695 (Version 4)
Quarter: 2023Q1

REPORT INFORMATION
  Report Type: Report from Study
  Country: GB (occurrence: GB)
  Receive Date: 20221121
  Receipt Date: 20230207
  Transmission Date: 20230418
  Serious: Yes (Other)
  Sender: FDA-Public Use
  Company Number: GB-ABBVIE-4143283

PATIENT
  Age: 70 Year
  Sex: Female

DRUGS (13)
  1. CARBIDOPA\LEVODOPA [Suspect]
     Active Substance: CARBIDOPA\LEVODOPA
     Indication: Parkinson^s disease
     Dosage: MD: 5.5, CR: 3.7, ED:1.0, 20MGS/5MGS,
     Route: 050
     Dates: end: 2022
  2. CARBIDOPA\LEVODOPA [Suspect]
     Active Substance: CARBIDOPA\LEVODOPA
     Dosage: DOSE INCREASED, MD:9.8MLS, CR: 5.1MLS
     Route: 050
  3. CARBIDOPA\LEVODOPA [Suspect]
     Active Substance: CARBIDOPA\LEVODOPA
     Dosage: DOSE INCREASED
     Route: 050
  4. SINEMET [Concomitant]
     Active Substance: CARBIDOPA\LEVODOPA
     Indication: Product used for unknown indication
     Dosage: 25/100MG
  5. SINEMET [Concomitant]
     Active Substance: CARBIDOPA\LEVODOPA
     Indication: Product used for unknown indication
     Dosage: 25/100MG, FREQUENCY TEXT: OVERNIGHT 1 AT  22:30
  6. RASAGILINE [Concomitant]
     Active Substance: RASAGILINE
     Indication: Product used for unknown indication
     Dosage: 1 MG TABLET
  7. AMANTADINE [Concomitant]
     Active Substance: AMANTADINE
     Indication: Product used for unknown indication
     Dosage: 100  MG TABLET
  8. MOVICOL [Concomitant]
     Active Substance: POLYETHYLENE GLYCOL 3350\POTASSIUM CHLORIDE\SODIUM BICARBONATE\SODIUM CHLORIDE
     Indication: Product used for unknown indication
  9. SAFINAMIDE [Concomitant]
     Active Substance: SAFINAMIDE
     Indication: Product used for unknown indication
  10. DOCUSATE [Concomitant]
     Active Substance: DOCUSATE
     Indication: Product used for unknown indication
  11. MELATONIN [Concomitant]
     Active Substance: MELATONIN
     Indication: Product used for unknown indication
  12. MELATONIN [Concomitant]
     Active Substance: MELATONIN
     Indication: Product used for unknown indication
     Dosage: 2 MG TABLET
  13. PRAMIPEXOLE [Concomitant]
     Active Substance: PRAMIPEXOLE
     Indication: Product used for unknown indication

REACTIONS (17)
  - Lower respiratory tract infection [Recovering/Resolving]
  - Weight decreased [Recovered/Resolved]
  - Ear infection [Not Recovered/Not Resolved]
  - Dystonia [Not Recovered/Not Resolved]
  - Tremor [Not Recovered/Not Resolved]
  - Stoma site hypergranulation [Recovering/Resolving]
  - Conjunctivitis [Recovering/Resolving]
  - Malaise [Not Recovered/Not Resolved]
  - Poor quality sleep [Not Recovered/Not Resolved]
  - Muscle rigidity [Not Recovered/Not Resolved]
  - Tonsillitis [Not Recovered/Not Resolved]
  - Infection [Not Recovered/Not Resolved]
  - Stoma site discharge [Not Recovered/Not Resolved]
  - Therapeutic product effect incomplete [Not Recovered/Not Resolved]
  - Freezing phenomenon [Not Recovered/Not Resolved]
  - Bursitis [Not Recovered/Not Resolved]
  - On and off phenomenon [Not Recovered/Not Resolved]

NARRATIVE: CASE EVENT DATE: 20220101
